FAERS Safety Report 23110563 (Version 1)
Quarter: 2023Q4

REPORT INFORMATION
  Report Type: Spontaneous
  Country: US (occurrence: US)
  Receive Date: 20231026
  Receipt Date: 20231026
  Transmission Date: 20240109
  Serious: Yes (Death)
  Sender: FDA-Public Use
  Company Number: US-SUN PHARMACEUTICAL INDUSTRIES LTD-2023R1-414313

PATIENT
  Age: 68 Year
  Sex: Male

DRUGS (3)
  1. CEFEPIME [Suspect]
     Active Substance: CEFEPIME HYDROCHLORIDE
     Indication: Clostridium bacteraemia
     Dosage: UNK
     Route: 065
  2. CLINDAMYCIN [Suspect]
     Active Substance: CLINDAMYCIN
     Indication: Clostridium bacteraemia
     Dosage: 600 MILLIGRAM, EVERY 8 HR
     Route: 065
  3. PENICILLIN G [Suspect]
     Active Substance: PENICILLIN G
     Indication: Clostridium bacteraemia
     Dosage: 4 MILLION UNITS EVERY 4 HOURS
     Route: 065

REACTIONS (1)
  - Disease progression [Fatal]
